FAERS Safety Report 6913511-1 (Version None)
Quarter: 2010Q3

REPORT INFORMATION
  Report Type: 
  Country: None (occurrence: None)
  Receive Date: 20100805
  Receipt Date: 20100805
  Transmission Date: 20110219
  Serious: Yes (Other)
  Sender: FDA-Public Use
  Company Number: None

PATIENT
  Sex: Female
  Weight: 72.5755 kg

DRUGS (2)
  1. IMITREX [Suspect]
     Indication: MIGRAINE
     Dosage: IMITREX (GENERIC) 100MG AT ONSET ORAL
     Route: 048
     Dates: start: 20090901
  2. IMITREX [Suspect]
     Indication: MIGRAINE
     Dosage: IMITREX (GENERIC) 100MG AT ONSET ORAL
     Route: 048
     Dates: start: 20091101

REACTIONS (2)
  - DRUG EFFECT DECREASED [None]
  - TREATMENT FAILURE [None]
